FAERS Safety Report 7456225-4 (Version None)
Quarter: 2011Q2

REPORT INFORMATION
  Report Type: 
  Country: None (occurrence: None)
  Receive Date: 20110426
  Receipt Date: 20110411
  Transmission Date: 20111010
  Serious: No
  Sender: FDA-Public Use
  Company Number: AUR-APL-2011-01134

PATIENT
  Age: 45 Year
  Sex: Male

DRUGS (6)
  1. DIDANOSINE [Suspect]
     Indication: ANTIRETROVIRAL THERAPY
     Dates: start: 19980101
  2. LAMIVUDINE [Suspect]
     Indication: ANTIRETROVIRAL THERAPY
     Dates: start: 19940101
  3. NELFINAVIR MESYLATE [Suspect]
     Indication: ANTIRETROVIRAL THERAPY
     Dates: start: 19990101
  4. AZT [Suspect]
     Indication: ANTIRETROVIRAL THERAPY
     Dates: start: 19940101
  5. D4T [Suspect]
     Indication: ANTIRETROVIRAL THERAPY
     Dates: start: 19980101
  6. FORTOVASE [Suspect]
     Indication: ANTIRETROVIRAL THERAPY
     Dates: start: 19980101, end: 19990101

REACTIONS (9)
  - ANAEMIA [None]
  - ALANINE AMINOTRANSFERASE INCREASED [None]
  - THROMBOCYTOPENIA [None]
  - HEPATOMEGALY [None]
  - BIOPSY LIVER ABNORMAL [None]
  - ASPARTATE AMINOTRANSFERASE INCREASED [None]
  - BLOOD ALKALINE PHOSPHATASE INCREASED [None]
  - CHOLESTASIS [None]
  - GAMMA-GLUTAMYLTRANSFERASE INCREASED [None]
